FAERS Safety Report 19493220 (Version 8)
Quarter: 2023Q2

REPORT INFORMATION
  Report Type: Other
  Country: US (occurrence: None)
  Receive Date: 20210705
  Receipt Date: 20230425
  Transmission Date: 20230721
  Serious: Yes (Other)
  Sender: FDA-Public Use
  Company Number: US-ROCHE-2861652

PATIENT
  Age: 78 Year
  Sex: Female

DRUGS (15)
  1. ACTEMRA [Suspect]
     Active Substance: TOCILIZUMAB
     Indication: Giant cell arteritis
     Route: 058
     Dates: start: 20210709
  2. ACTEMRA [Suspect]
     Active Substance: TOCILIZUMAB
     Route: 065
  3. PREDNISONE [Suspect]
     Active Substance: PREDNISONE
     Indication: Product used for unknown indication
     Route: 065
  4. ACTEMRA [Suspect]
     Active Substance: TOCILIZUMAB
     Indication: Giant cell arteritis
     Route: 058
  5. ACTEMRA [Suspect]
     Active Substance: TOCILIZUMAB
  6. COLACE [Concomitant]
     Active Substance: DOCUSATE SODIUM
  7. CALCITONIN [Concomitant]
     Active Substance: CALCITONIN
  8. CLOBETASOL [Concomitant]
     Active Substance: CLOBETASOL
  9. CLONIDINE [Concomitant]
     Active Substance: CLONIDINE
  10. DIVALPROEX SODIUM [Concomitant]
     Active Substance: DIVALPROEX SODIUM
  11. HYDRALAZINE [Concomitant]
     Active Substance: HYDRALAZINE HYDROCHLORIDE
  12. HYDROCODONE [Concomitant]
     Active Substance: HYDROCODONE
  13. LEVOTHYROXINE [Concomitant]
     Active Substance: LEVOTHYROXINE
  14. MIRALAX [Concomitant]
     Active Substance: POLYETHYLENE GLYCOL 3350
  15. NADOLOL [Concomitant]
     Active Substance: NADOLOL

REACTIONS (9)
  - Blindness unilateral [Unknown]
  - Fall [Unknown]
  - Spinal fracture [Unknown]
  - Fracture [Unknown]
  - Confusional state [Unknown]
  - Visual impairment [Unknown]
  - Back pain [Unknown]
  - Emotional distress [Unknown]
  - Bone disorder [Not Recovered/Not Resolved]

NARRATIVE: CASE EVENT DATE: 20220401
